FAERS Safety Report 9341053 (Version 1)
Quarter: 2013Q2

REPORT INFORMATION
  Report Type: Spontaneous
  Country: US (occurrence: US)
  Receive Date: 20130610
  Receipt Date: 20130610
  Transmission Date: 20140414
  Serious: Yes (Hospitalization, Other)
  Sender: FDA-Public Use
  Company Number: US-ASTRAZENECA-2013SE40247

PATIENT
  Age: 65 Year
  Sex: Female

DRUGS (1)
  1. CRESTOR [Suspect]
     Indication: LOW DENSITY LIPOPROTEIN INCREASED
     Route: 048
     Dates: end: 2010

REACTIONS (6)
  - Pituitary tumour [Recovered/Resolved]
  - Breast cancer [Unknown]
  - Blood prolactin increased [Recovered/Resolved]
  - Obesity [Unknown]
  - Hypertension [Unknown]
  - Pain [Unknown]
